FAERS Safety Report 19390688 (Version 1)
Quarter: 2021Q2

REPORT INFORMATION
  Report Type: Spontaneous
  Country: CH (occurrence: CH)
  Receive Date: 20210608
  Receipt Date: 20210608
  Transmission Date: 20210717
  Serious: Yes (Death, Other)
  Sender: FDA-Public Use
  Company Number: CH-PURDUE-USA-2021-0268947

PATIENT
  Age: 65 Year
  Sex: Female

DRUGS (15)
  1. PALLADONE [Suspect]
     Active Substance: HYDROMORPHONE HYDROCHLORIDE
     Indication: PAIN
     Dosage: 4 MG, UNK (1?0?1); (EXCEPTIONS: 1?0?2 ON 17.03.21, 0?1?0 ON 18.03.21)
     Route: 065
     Dates: start: 20210310, end: 20210319
  2. PALLADON INJEKT [Suspect]
     Active Substance: HYDROMORPHONE
     Dosage: 1 MG, DAILY
     Route: 065
     Dates: start: 20210320
  3. PASPERTIN                          /00041902/ [Concomitant]
     Active Substance: METOCLOPRAMIDE HYDROCHLORIDE
     Dosage: UNK
     Dates: start: 20210322
  4. SAROTEN [Concomitant]
     Active Substance: AMITRIPTYLINE
     Dosage: UNK
     Dates: start: 20210322
  5. LANTUS [Concomitant]
     Active Substance: INSULIN GLARGINE
     Dosage: UNK
     Dates: start: 20210322
  6. PALLADON INJEKT [Suspect]
     Active Substance: HYDROMORPHONE
     Dosage: 0.2 MG, BID
     Route: 065
     Dates: start: 20210319
  7. ONDANSETRON LABATEC [Concomitant]
     Active Substance: ONDANSETRON
     Dosage: UNK
     Dates: start: 20210322
  8. HYDROMORPHONI HYDROCHLORIDUM STREULI [Suspect]
     Active Substance: HYDROMORPHONE HYDROCHLORIDE
     Indication: PAIN
     Dosage: 3 MG, PRN (VARYING FROM 1X/DAY TO MAX. 3X/DAY)
     Route: 048
     Dates: start: 20210304, end: 20210320
  9. NOVALGIN (METAMIZOLE SODIUM) [Concomitant]
     Active Substance: METAMIZOLE SODIUM
     Dosage: UNK
     Dates: start: 20210322
  10. KEFZOL [Concomitant]
     Active Substance: CEFAZOLIN SODIUM
     Dosage: UNK
     Dates: start: 20210322
  11. PALLADON INJEKT [Suspect]
     Active Substance: HYDROMORPHONE
     Indication: PAIN
     Dosage: 1 MG, DAILY
     Route: 065
     Dates: start: 20210321, end: 20210322
  12. FRAGMIN [Concomitant]
     Active Substance: DALTEPARIN SODIUM
     Dosage: UNK
     Dates: start: 20210322
  13. PANTOZOL [Concomitant]
     Active Substance: PANTOPRAZOLE SODIUM
     Dosage: UNK
     Dates: start: 20210322
  14. TEMGESIC [Suspect]
     Active Substance: BUPRENORPHINE HYDROCHLORIDE
     Indication: PAIN
     Dosage: 0.2 MG, BID
     Route: 048
     Dates: start: 20210322, end: 20210322
  15. KONAKION [Concomitant]
     Active Substance: PHYTONADIONE
     Dosage: UNK
     Dates: start: 20210322

REACTIONS (2)
  - Toxicity to various agents [Fatal]
  - Acute respiratory failure [Fatal]

NARRATIVE: CASE EVENT DATE: 202103
